FAERS Safety Report 4275073-X (Version None)
Quarter: 2004Q1

REPORT INFORMATION
  Report Type: 
  Country: None (occurrence: None)
  Receive Date: 20040116
  Receipt Date: 20040112
  Transmission Date: 20041129
  Serious: Yes (Hospitalization)
  Sender: FDA-Public Use
  Company Number: 200410022BVD

PATIENT
  Age: 25 Year
  Sex: Female
  Weight: 60 kg

DRUGS (3)
  1. ASPIRIN [Suspect]
     Indication: NASOPHARYNGITIS
     Dosage: ORAL
     Route: 048
     Dates: start: 20011208, end: 20031211
  2. EISEN GLUCONAT [Concomitant]
  3. MULTI-VITAMINS [Concomitant]

REACTIONS (1)
  - ERYTHEMA MULTIFORME [None]
